FAERS Safety Report 20168646 (Version 1)
Quarter: 2021Q4

REPORT INFORMATION
  Report Type: Spontaneous
  Country: JP (occurrence: JP)
  Receive Date: 20211210
  Receipt Date: 20211210
  Transmission Date: 20220304
  Serious: Yes (Other)
  Sender: FDA-Public Use
  Company Number: JP-CHUGAI-2021030563

PATIENT
  Age: 73 Year
  Sex: Male

DRUGS (3)
  1. TECENTRIQ [Suspect]
     Active Substance: ATEZOLIZUMAB
     Indication: Lung neoplasm malignant
     Route: 041
  2. CARBOPLATIN [Concomitant]
     Active Substance: CARBOPLATIN
     Indication: Lung neoplasm malignant
     Route: 041
  3. PEMETREXED DISODIUM [Concomitant]
     Active Substance: PEMETREXED DISODIUM
     Indication: Lung neoplasm malignant
     Route: 041

REACTIONS (1)
  - Haemoglobin decreased [Unknown]
